FAERS Safety Report 4276470-9 (Version None)
Quarter: 2004Q1

REPORT INFORMATION
  Report Type: 
  Country: None (occurrence: None)
  Receive Date: 20040120
  Receipt Date: 20040119
  Transmission Date: 20041129
  Serious: Yes (Hospitalization, Disabling)
  Sender: FDA-Public Use
  Company Number: HQ5784710SEP2001

PATIENT
  Age: 64 Year
  Sex: Male
  Weight: 86.26 kg

DRUGS (6)
  1. DIMETAPP [Suspect]
     Indication: NASOPHARYNGITIS
     Dosage: SEE IMAGE
     Route: 048
     Dates: start: 19960101
  2. ALKA-SELTZER PLUS (ACETYLSALICYLIC ACID/CHLORPHENAMINE MALEATE/PHENYLP [Suspect]
     Indication: NASOPHARYNGITIS
     Dosage: ORAL
     Route: 048
     Dates: start: 19960101
  3. ALKA-SELTZER PLUS (ACETYLSALICYLIC ACID/CHLORPHENAMINE MALEATE/PHENYLP [Suspect]
     Dosage: ORAL
     Dates: start: 19960101
  4. BC (ACETYLSALICYLIC ACID/CAFFEINE/SALICYLAMIDE, POWDER) [Suspect]
     Dosage: ORAL
     Route: 048
  5. CONTAC [Suspect]
  6. ROBUTUSSIN CF (GUAIFENESIN/DEXTROMETHORPHAN/PHENYLPROPANOLAMINE, SYRUP [Suspect]
     Indication: NASOPHARYNGITIS
     Dates: start: 19960101

REACTIONS (2)
  - CEREBRAL INFARCTION [None]
  - CEREBROVASCULAR ACCIDENT [None]
